FAERS Safety Report 9156647 (Version 2)
Quarter: 2013Q1

REPORT INFORMATION
  Report Type: Spontaneous
  Country: US (occurrence: None)
  Receive Date: 20130211
  Receipt Date: 20130221
  Transmission Date: 20140127
  Serious: Yes (Hospitalization, Other)
  Sender: FDA-Public Use
  Company Number: 2013SUN00060

PATIENT
  Age: 60 Year
  Sex: Male
  Weight: 120.2 kg

DRUGS (9)
  1. METFORMIN [Suspect]
     Indication: TYPE 2 DIABETES MELLITUS
     Route: 048
     Dates: start: 20100625
  2. BLINDED GLIPIZIDE (BLINDED GLIPIZIDE) [Suspect]
     Indication: TYPE 2 DIABETES MELLITUS
     Route: 048
     Dates: start: 20100727, end: 20120302
  3. ALBUTEROL (SALBUTAMOL) [Concomitant]
  4. ATENOLOL [Concomitant]
  5. FISH OIL [Concomitant]
  6. FUROSEMIDE [Concomitant]
  7. MULTIVITAMINS [Concomitant]
  8. NORVASC [Concomitant]
  9. SYMBICORT [Concomitant]

REACTIONS (1)
  - Atrial fibrillation [None]
